FAERS Safety Report 17651454 (Version 3)
Quarter: 2020Q4

REPORT INFORMATION
  Report Type: Spontaneous
  Country: DE (occurrence: DE)
  Receive Date: 20200409
  Receipt Date: 20201117
  Transmission Date: 20210113
  Serious: Yes (Hospitalization, Other)
  Sender: FDA-Public Use
  Company Number: DE-TEVA-2020-DE-1219364

PATIENT
  Age: 61 Year
  Sex: Male
  Weight: 108 kg

DRUGS (30)
  1. VALSARTAN ABZ 160 MG [Suspect]
     Active Substance: VALSARTAN
     Indication: HYPERTENSION
     Dosage: 80 MILLIGRAM DAILY;
     Route: 048
     Dates: start: 201411, end: 2014
  2. VALSARTAN ABZ 160 MG [Suspect]
     Active Substance: VALSARTAN
     Dosage: 80 MILLIGRAM DAILY;
     Route: 048
     Dates: start: 201606, end: 2017
  3. VALSARTAN DURA [Suspect]
     Active Substance: VALSARTAN
     Dosage: 1-0-0
     Dates: start: 2018, end: 2019
  4. VALSARTAN ABZ 160 MG [Suspect]
     Active Substance: VALSARTAN
     Dosage: 80 MILLIGRAM DAILY;
     Route: 048
     Dates: start: 201806, end: 2018
  5. CEFUROX BASICS 500 MG [Concomitant]
     Active Substance: CEFUROXIME AXETIL
     Dates: start: 201408
  6. BETAGALEN CREME [Concomitant]
     Dates: start: 201908
  7. METRONIDAZOL AL 400 [Concomitant]
     Active Substance: METRONIDAZOLE
     Dates: start: 2014
  8. METOPROLOL SUCCINAT [Concomitant]
     Dosage: 1-0-0
     Dates: start: 2002
  9. VOLTAREN RESINAT [Concomitant]
     Active Substance: DICLOFENAC
     Dates: start: 201412
  10. VALSARTAN ABZ 160 MG [Suspect]
     Active Substance: VALSARTAN
     Dosage: 80 MILLIGRAM DAILY;
     Route: 048
     Dates: start: 201507, end: 2015
  11. VALSARTAN HEXAL 160 MG [Suspect]
     Active Substance: VALSARTAN
     Indication: HYPERTENSION
     Dosage: 80 MILLIGRAM DAILY;
     Route: 048
     Dates: start: 201311, end: 2014
  12. CIPROFLOXACIN 500 MG (VARIOUS MAHS) [Concomitant]
     Dates: start: 2014
  13. PANTOPRAZOL TAD 40 MG [Concomitant]
  14. NITROLINGUAL [Concomitant]
     Active Substance: NITROGLYCERIN
     Dates: start: 201611
  15. VALSARTAN 1A PHARMA 160 MG [Suspect]
     Active Substance: VALSARTAN
     Indication: HYPERTENSION
     Dosage: 80 MILLIGRAM DAILY;
     Route: 048
     Dates: start: 201712
  16. VALSARTAN 1A PHARMA 160 MG [Suspect]
     Active Substance: VALSARTAN
     Dosage: 80 MILLIGRAM DAILY;
     Route: 048
     Dates: start: 201807
  17. VALSACOR 80 MG FILMTABLETTEN [Suspect]
     Active Substance: VALSARTAN
     Indication: HYPERTENSION
     Dosage: 80 MILLIGRAM DAILY;
     Route: 048
     Dates: start: 201811
  18. ASS 100 [Concomitant]
     Active Substance: ASPIRIN
     Dosage: 0-1-0
     Dates: start: 2002
  19. FINASTERID [Concomitant]
     Active Substance: FINASTERIDE
     Dosage: 1-0-0
     Dates: start: 2016
  20. DIAZEPAM TROPFEN [Concomitant]
     Dosage: 2-5 MG AS REQUIRED
     Dates: start: 2000
  21. BAYCUTEN CREME [Concomitant]
     Dates: start: 201502
  22. NOVAMINSULFON 500 MG [Concomitant]
     Active Substance: METAMIZOLE
     Dates: start: 201508
  23. TAMSULOSIN [Concomitant]
     Active Substance: TAMSULOSIN
     Dates: start: 201604
  24. CINNARIZIN DIMENHYDRINAT HENNIG 20 MG/40 MG TABL [Concomitant]
     Dates: start: 201705
  25. DOXYCYCLIN [Concomitant]
     Active Substance: DOXYCYCLINE
     Dates: start: 201503
  26. DICLOFENAC RATIO 50 MG [Concomitant]
     Dates: start: 201701
  27. ATORVASTATIN [Concomitant]
     Active Substance: ATORVASTATIN
     Dosage: 0-0-1
     Dates: start: 2002
  28. IBUPROFEN (VARIOUS MAHS) [Concomitant]
     Dates: start: 201504
  29. PARACODIN N TROPFEN [Concomitant]
     Dates: start: 201603
  30. INFECTOTRIMET 200 MG [Concomitant]
     Dates: start: 201604

REACTIONS (2)
  - Product impurity [Unknown]
  - Malignant melanoma [Unknown]

NARRATIVE: CASE EVENT DATE: 20190823
